FAERS Safety Report 5779984-5 (Version None)
Quarter: 2008Q2

REPORT INFORMATION
  Report Type: 
  Country: None (occurrence: None)
  Receive Date: 20080616
  Receipt Date: 20080514
  Transmission Date: 20081010
  Serious: Yes (Other)
  Sender: FDA-Public Use
  Company Number: 07-526

PATIENT
  Age: 48 Year
  Sex: Female
  Weight: 77.1115 kg

DRUGS (5)
  1. ALEVE [Suspect]
     Indication: RESTLESS LEGS SYNDROME
     Dosage: 220 MG, DAILY, ORAL
     Route: 048
     Dates: start: 20070917, end: 20071001
  2. PREVACID [Concomitant]
  3. ZOLOFT [Concomitant]
  4. SYNTHROID [Concomitant]
  5. HYDROCHLOROTHIAZIDE [Concomitant]

REACTIONS (1)
  - EPISTAXIS [None]
